FAERS Safety Report 6815166-3 (Version None)
Quarter: 2010Q2

REPORT INFORMATION
  Report Type: 
  Country: None (occurrence: None)
  Receive Date: 20100630
  Receipt Date: 20100630
  Transmission Date: 20101027
  Serious: Yes (Other)
  Sender: FDA-Public Use
  Company Number: None

PATIENT
  Age: 16 Year
  Sex: Male
  Weight: 74.8435 kg

DRUGS (3)
  1. ALL DAY ALLERGY RELIEF 10 MG TARGET [Suspect]
     Indication: EYE ALLERGY
     Dosage: 1 TABLET DAILY PO
     Route: 048
     Dates: start: 20090215, end: 20100625
  2. ALL DAY ALLERGY RELIEF 10 MG TARGET [Suspect]
     Indication: HYPERSENSITIVITY
     Dosage: 1 TABLET DAILY PO
     Route: 048
     Dates: start: 20090215, end: 20100625
  3. ZYRTEC [Concomitant]

REACTIONS (1)
  - PRURITUS GENERALISED [None]
